FAERS Safety Report 5594505-8 (Version None)
Quarter: 2008Q1

REPORT INFORMATION
  Report Type: 
  Country: None (occurrence: None)
  Receive Date: 20080117
  Receipt Date: 20080107
  Transmission Date: 20080703
  Serious: Yes (Death)
  Sender: FDA-Public Use
  Company Number: US-WYE-H02028108

PATIENT
  Age: 36 Year
  Sex: Male

DRUGS (4)
  1. IBUPROFEN [Suspect]
     Dosage: UNKNOWN
     Route: 065
     Dates: start: 20060101, end: 20060101
  2. LAMOTRIGINE [Suspect]
     Dosage: UNKNOWN
     Route: 065
     Dates: start: 20060101, end: 20060101
  3. METOPROLOL [Suspect]
     Dosage: UNKNOWN
     Route: 065
     Dates: start: 20060101, end: 20060101
  4. BUPROPION HCL [Suspect]
     Dosage: UNKNOWN
     Route: 065
     Dates: start: 20060101, end: 20060101

REACTIONS (5)
  - AGITATION [None]
  - APNOEA [None]
  - DEPRESSED LEVEL OF CONSCIOUSNESS [None]
  - DYSKINESIA [None]
  - INTENTIONAL OVERDOSE [None]
